FAERS Safety Report 11715903 (Version 2)
Quarter: 2015Q4

REPORT INFORMATION
  Report Type: Spontaneous
  Country: US (occurrence: US)
  Receive Date: 20151104
  Receipt Date: 20151110
  Transmission Date: 20160304
  Serious: No
  Sender: FDA-Public Use
  Company Number: US-ELI_LILLY_AND_COMPANY-US201109000821

PATIENT
  Age: 66 Year
  Sex: Female

DRUGS (2)
  1. FORTEO [Suspect]
     Active Substance: TERIPARATIDE
     Dosage: 20 UG, QD
     Dates: end: 201202
  2. FORTEO [Suspect]
     Active Substance: TERIPARATIDE
     Indication: OSTEOPOROSIS
     Dosage: 20 UG, QD
     Dates: start: 2010

REACTIONS (12)
  - Coeliac disease [Unknown]
  - Intentional product misuse [Unknown]
  - Musculoskeletal disorder [Not Recovered/Not Resolved]
  - Vitamin D decreased [Unknown]
  - Anaemia [Unknown]
  - Abscess drainage [Unknown]
  - Infection [Unknown]
  - Bone density decreased [Unknown]
  - Fatigue [Unknown]
  - Haemorrhage [Unknown]
  - Joint injury [Unknown]
  - Arthropathy [Unknown]

NARRATIVE: CASE EVENT DATE: 20111010
